FAERS Safety Report 24428740 (Version 2)
Quarter: 2024Q4

REPORT INFORMATION
  Report Type: Spontaneous
  Country: CN (occurrence: CN)
  Receive Date: 20241011
  Receipt Date: 20241024
  Transmission Date: 20250115
  Serious: Yes (Hospitalization)
  Sender: PARATEK PHARMACEUTICALS
  Company Number: CN-PARATEK PHARMACEUTICALS, INC.-2024PTK00900

PATIENT
  Age: 67 Year
  Sex: Male

DRUGS (8)
  1. OMADACYCLINE [Suspect]
     Active Substance: OMADACYCLINE
     Dosage: UNK
     Dates: start: 20231108, end: 202311
  2. PROPOFOL [Suspect]
     Active Substance: PROPOFOL
     Indication: Sedation
     Dosage: ^THROUGHOUT THE ENTIRE PROCESS^
     Dates: start: 20231025
  3. FUROSEMIDE [Suspect]
     Active Substance: FUROSEMIDE
     Indication: Polyuria
     Dosage: UNK
     Dates: start: 20231103, end: 20231107
  4. CEFOPERAZONE SODIUM\SULBACTAM SODIUM [Suspect]
     Active Substance: CEFOPERAZONE SODIUM\SULBACTAM SODIUM
     Indication: Anti-infective therapy
     Dosage: UNK
     Dates: start: 20231108, end: 20231122
  5. LEVOFLOXACIN [Suspect]
     Active Substance: LEVOFLOXACIN
     Indication: Anti-infective therapy
     Dosage: UNK
     Dates: start: 20231025, end: 20231108
  6. MEROPENEM [Suspect]
     Active Substance: MEROPENEM
     Indication: Anti-infective therapy
     Dosage: UNK
     Dates: start: 20231025, end: 20231108
  7. AMLODIPINE [Concomitant]
     Active Substance: AMLODIPINE BESYLATE
     Indication: Hypertension
  8. METOPROLOL [Concomitant]
     Active Substance: METOPROLOL
     Indication: Hypertension

REACTIONS (1)
  - Pancreatitis acute [Recovered/Resolved]

NARRATIVE: CASE EVENT DATE: 20231101
